FAERS Safety Report 18330553 (Version 7)
Quarter: 2022Q3

REPORT INFORMATION
  Report Type: Report from Study
  Country: JP (occurrence: JP)
  Receive Date: 20200930
  Receipt Date: 20220811
  Transmission Date: 20221027
  Serious: Yes (Hospitalization, Other)
  Sender: FDA-Public Use
  Company Number: JP-ACTELION-A-CH2016-141905

PATIENT
  Age: 43 Year
  Sex: Female
  Weight: 49 kg

DRUGS (47)
  1. OPSUMIT [Interacting]
     Active Substance: MACITENTAN
     Indication: Pulmonary arterial hypertension
     Dosage: 10 MG, QD
     Route: 048
     Dates: start: 20160303
  2. OPSUMIT [Interacting]
     Active Substance: MACITENTAN
     Indication: Pulmonary arterial hypertension
  3. UPTRAVI [Suspect]
     Active Substance: SELEXIPAG
     Indication: Pulmonary arterial hypertension
     Dosage: 0.2 MG, BID
     Route: 048
     Dates: start: 20180131, end: 20180204
  4. UPTRAVI [Suspect]
     Active Substance: SELEXIPAG
     Indication: Pulmonary arterial hypertension
     Dosage: 0.4 MG, BID
     Route: 048
     Dates: start: 20180205, end: 20180326
  5. UPTRAVI [Suspect]
     Active Substance: SELEXIPAG
     Indication: Pulmonary hypertension
     Dosage: 0.5 MG, BID
     Route: 048
     Dates: start: 20180327, end: 20180424
  6. UPTRAVI [Suspect]
     Active Substance: SELEXIPAG
     Dosage: 0.3 MG, QID
     Route: 048
     Dates: start: 20180425, end: 20180613
  7. UPTRAVI [Suspect]
     Active Substance: SELEXIPAG
     Dosage: 0.3 MG TWO TIMES AND 0.4 MG 2 TIMES
     Route: 048
     Dates: start: 20180614, end: 20180904
  8. UPTRAVI [Suspect]
     Active Substance: SELEXIPAG
     Dosage: 0.4 MG, QID
     Route: 048
     Dates: start: 20180905, end: 201809
  9. UPTRAVI [Suspect]
     Active Substance: SELEXIPAG
     Dosage: 1.4 MG, QD
     Route: 048
     Dates: start: 201809, end: 20181213
  10. UPTRAVI [Suspect]
     Active Substance: SELEXIPAG
     Dosage: 0.4 MG, QID
     Route: 048
     Dates: start: 20181214, end: 20190327
  11. UPTRAVI [Suspect]
     Active Substance: SELEXIPAG
     Route: 048
     Dates: start: 20190328, end: 20190407
  12. UPTRAVI [Suspect]
     Active Substance: SELEXIPAG
     Route: 048
     Dates: start: 20190408, end: 20190411
  13. UPTRAVI [Suspect]
     Active Substance: SELEXIPAG
     Route: 048
     Dates: start: 20190412, end: 20190419
  14. UPTRAVI [Suspect]
     Active Substance: SELEXIPAG
     Route: 048
     Dates: start: 20190420, end: 20190514
  15. UPTRAVI [Suspect]
     Active Substance: SELEXIPAG
     Route: 048
     Dates: start: 20190515, end: 20190709
  16. UPTRAVI [Suspect]
     Active Substance: SELEXIPAG
     Route: 048
     Dates: start: 20190710, end: 20190820
  17. UPTRAVI [Suspect]
     Active Substance: SELEXIPAG
     Route: 048
     Dates: start: 20190821, end: 20190827
  18. UPTRAVI [Suspect]
     Active Substance: SELEXIPAG
     Route: 048
     Dates: start: 20190828, end: 20200127
  19. ADEMPAS [Interacting]
     Active Substance: RIOCIGUAT
     Indication: Pulmonary arterial hypertension
     Dosage: 1.5 MG, QD
     Route: 048
     Dates: start: 20160309, end: 20160315
  20. ADEMPAS [Interacting]
     Active Substance: RIOCIGUAT
     Dosage: 3 MG, QD
     Route: 048
     Dates: start: 20160316, end: 20160322
  21. ADEMPAS [Interacting]
     Active Substance: RIOCIGUAT
     Dosage: 4.5 MG, QD
     Route: 048
     Dates: start: 20160323, end: 20160412
  22. ADEMPAS [Interacting]
     Active Substance: RIOCIGUAT
     Dosage: 6 MG, QD
     Route: 048
     Dates: start: 20160413, end: 20160609
  23. ADEMPAS [Interacting]
     Active Substance: RIOCIGUAT
     Dosage: 7.5 MG, QD
     Route: 048
     Dates: start: 20160610, end: 20161226
  24. ADEMPAS [Interacting]
     Active Substance: RIOCIGUAT
     Dosage: 4.5 MG, QD
     Route: 048
     Dates: start: 20161227, end: 20170103
  25. ADCIRCA [Suspect]
     Active Substance: TADALAFIL
     Indication: Pulmonary arterial hypertension
     Dosage: 20 MG, QD
     Route: 048
     Dates: start: 20160217, end: 20160308
  26. ADCIRCA [Suspect]
     Active Substance: TADALAFIL
     Indication: Pulmonary arterial hypertension
     Dosage: 40 MG, QD
     Route: 048
     Dates: start: 20170104, end: 20170328
  27. ADCIRCA [Suspect]
     Active Substance: TADALAFIL
     Dosage: 20 MG, BID
     Route: 048
     Dates: start: 20170329
  28. ADCIRCA [Suspect]
     Active Substance: TADALAFIL
     Route: 048
  29. CAPTOPRIL [Concomitant]
     Active Substance: CAPTOPRIL
     Dosage: UNK
     Route: 048
     Dates: end: 20170119
  30. DIAZEPAM [Concomitant]
     Active Substance: DIAZEPAM
     Dates: start: 20190612
  31. MAGNESIUM OXIDE [Concomitant]
     Active Substance: MAGNESIUM OXIDE
  32. BIFIDOBACTERIUM SPP. [Concomitant]
     Active Substance: BIFIDOBACTERIUM SPP.
     Indication: Constipation
     Dosage: 3 G, QD
     Dates: start: 20180307, end: 20180321
  33. BIFIDOBACTERIUM SPP. [Concomitant]
     Active Substance: BIFIDOBACTERIUM SPP.
     Dosage: UNK
     Dates: start: 20180530
  34. BIFIDOBACTERIUM SPP. [Concomitant]
     Active Substance: BIFIDOBACTERIUM SPP.
     Dates: start: 20190715, end: 20190719
  35. OXYGEN [Concomitant]
     Active Substance: OXYGEN
  36. TRAVELMIN [Concomitant]
     Indication: Vertebrobasilar insufficiency
     Dosage: UNK
     Dates: start: 20170119
  37. POTASSIUM ASPARTATE [Concomitant]
     Active Substance: POTASSIUM ASPARTATE
     Indication: Hypokalaemia
     Dosage: 300 MG, QD
     Dates: start: 201801, end: 20180725
  38. POTASSIUM ASPARTATE [Concomitant]
     Active Substance: POTASSIUM ASPARTATE
     Dosage: UNK
  39. FUROSEMIDE [Concomitant]
     Active Substance: FUROSEMIDE
     Indication: Cardiac failure chronic
     Dosage: 40 MG, QD
     Dates: start: 201801, end: 20180731
  40. FUROSEMIDE [Concomitant]
     Active Substance: FUROSEMIDE
     Indication: Cardiac failure
     Dosage: 20 MG, QD
     Dates: start: 20180801
  41. SPIRONOLACTONE [Concomitant]
     Active Substance: SPIRONOLACTONE
     Indication: Cardiac failure
     Dosage: 50 MG, QD
     Route: 048
     Dates: start: 201801, end: 20180904
  42. SPIRONOLACTONE [Concomitant]
     Active Substance: SPIRONOLACTONE
     Dosage: 25 MG, QD
     Dates: start: 20180905
  43. MIYA-BM [Concomitant]
     Active Substance: CLOSTRIDIUM BUTYRICUM SPORES STRAIN M-55
     Dosage: UNK
     Dates: start: 201801, end: 20180306
  44. NEXIUM [Concomitant]
     Active Substance: ESOMEPRAZOLE MAGNESIUM
     Dosage: 20 MG, QD
  45. FERROUS SULFATE [Concomitant]
     Active Substance: FERROUS SULFATE
     Indication: Prophylaxis
     Dates: start: 20190424
  46. MAGNESIUM OXIDE [Concomitant]
     Active Substance: MAGNESIUM OXIDE
     Dates: start: 20190424, end: 20190521
  47. ULTRA-TECHNEKOW [SODIUM PERTECHNETATE (99M TC)] [Concomitant]
     Indication: Scan thyroid gland
     Dates: start: 20190723, end: 20190723

REACTIONS (35)
  - Pulmonary alveolar haemorrhage [Recovering/Resolving]
  - Haemoptysis [Recovered/Resolved]
  - Hyperthyroidism [Recovering/Resolving]
  - Arrhythmia [Not Recovered/Not Resolved]
  - Headache [Recovering/Resolving]
  - Rhinitis [Recovering/Resolving]
  - Malaise [Recovered/Resolved]
  - Pain in extremity [Recovering/Resolving]
  - Chronic gastritis [Recovered/Resolved]
  - Upper respiratory tract inflammation [Recovered/Resolved]
  - Dizziness [Recovering/Resolving]
  - Nausea [Recovered/Resolved]
  - Vasodilatation [Recovering/Resolving]
  - Oropharyngeal pain [Recovered/Resolved]
  - Productive cough [Recovered/Resolved]
  - Infection [Recovered/Resolved]
  - Blood pressure decreased [Recovering/Resolving]
  - Drug interaction [Unknown]
  - Nasopharyngitis [Recovering/Resolving]
  - Arthralgia [Recovering/Resolving]
  - Chest pain [Recovering/Resolving]
  - Vertigo [Recovering/Resolving]
  - Vertebrobasilar insufficiency [Recovering/Resolving]
  - Epistaxis [Recovered/Resolved]
  - Cough [Recovered/Resolved]
  - Dyspnoea [Recovered/Resolved]
  - Iron deficiency anaemia [Recovering/Resolving]
  - Diarrhoea [Recovering/Resolving]
  - Sciatica [Recovering/Resolving]
  - Toothache [Recovered/Resolved]
  - Hypotension [Recovered/Resolved]
  - Tooth extraction [Unknown]
  - Dental caries [Recovered/Resolved]
  - Pharyngitis [Recovered/Resolved]
  - Drug ineffective [Unknown]

NARRATIVE: CASE EVENT DATE: 20160304
